FAERS Safety Report 10082651 (Version 1)
Quarter: 2014Q2

REPORT INFORMATION
  Report Type: Spontaneous
  Country: US (occurrence: US)
  Receive Date: 20140416
  Receipt Date: 20140416
  Transmission Date: 20141212
  Serious: Yes (Hospitalization)
  Sender: FDA-Public Use
  Company Number: US-B.I. PHARMACEUTICALS,INC./RIDGEFIELD-2014-BI-16973BP

PATIENT
  Age: 85 Year
  Sex: Male

DRUGS (17)
  1. SPIRIVA [Suspect]
     Indication: CHRONIC OBSTRUCTIVE PULMONARY DISEASE
     Dosage: 18 MCG
     Route: 055
     Dates: start: 2004, end: 2004
  2. CITRUCEL [Concomitant]
     Indication: DIVERTICULUM
     Route: 048
  3. ELAVIL [Concomitant]
     Indication: INSOMNIA
     Route: 048
  4. HYZAAR [Concomitant]
     Indication: HYPERTENSION
     Route: 048
  5. LIPITOR [Concomitant]
     Indication: BLOOD CHOLESTEROL INCREASED
     Route: 048
  6. ACETAMINOPHEN [Concomitant]
     Indication: BACK PAIN
     Route: 048
  7. BENTYL [Concomitant]
     Indication: DIVERTICULUM
     Route: 048
     Dates: start: 1990
  8. SYNTHROID [Concomitant]
     Indication: HYPOTHYROIDISM
     Dosage: 88 MCG
     Route: 048
  9. BENADRYL [Concomitant]
     Indication: SNEEZING
     Route: 048
  10. ATROVENT [Concomitant]
     Indication: SINUS DISORDER
     Dosage: FORMULATION: INHALATION SPRAY
     Route: 045
  11. FLONASE [Concomitant]
     Indication: SINUS DISORDER
     Dosage: FORMULATION: INHALATION SPRAY
     Route: 045
  12. SYMBICORT [Concomitant]
     Indication: CHRONIC OBSTRUCTIVE PULMONARY DISEASE
     Route: 055
  13. TUSSIN DM [Concomitant]
     Indication: COUGH
     Route: 048
  14. COUMADIN [Concomitant]
     Indication: ATRIAL FIBRILLATION
     Route: 048
  15. CROMLYN SODIUM [Concomitant]
     Indication: EYE IRRITATION
     Route: 050
  16. PRILOSEC [Concomitant]
     Indication: ABDOMINAL DISCOMFORT
     Dosage: 40 MG
     Route: 048
  17. REGLAN [Concomitant]
     Indication: NAUSEA
     Route: 048

REACTIONS (3)
  - Oropharyngeal pain [Recovered/Resolved]
  - Pulmonary oedema [Recovered/Resolved]
  - Chronic obstructive pulmonary disease [Recovered/Resolved]
